FAERS Safety Report 24430611 (Version 2)
Quarter: 2024Q4

REPORT INFORMATION
  Report Type: Spontaneous
  Country: BR (occurrence: BR)
  Receive Date: 20241013
  Receipt Date: 20241023
  Transmission Date: 20250115
  Serious: Yes (Other)
  Sender: BAUSCH AND LOMB
  Company Number: BR-BAUSCHBL-2024BNL034733

PATIENT
  Age: 43 Year
  Sex: Male

DRUGS (2)
  1. LOTEPREDNOL ETABONATE [Suspect]
     Active Substance: LOTEPREDNOL ETABONATE
     Indication: Ocular hypertension
     Dosage: USE EVERY 6 HOURS WITH WEANING EVERY 7 DAYS (MAINTAINED 1X PER DAY)
     Route: 050
     Dates: start: 20230509
  2. LOTEPREDNOL ETABONATE [Suspect]
     Active Substance: LOTEPREDNOL ETABONATE
     Indication: Off label use

REACTIONS (2)
  - Corneal graft rejection [Not Recovered/Not Resolved]
  - Off label use [Unknown]

NARRATIVE: CASE EVENT DATE: 20240501
